FAERS Safety Report 8811849 (Version 1)
Quarter: 2012Q4

REPORT INFORMATION
  Report Type: Spontaneous
  Country: US (occurrence: None)
  Receive Date: 20120926
  Receipt Date: 20120926
  Transmission Date: 20130627
  Serious: No
  Sender: FDA-Public Use
  Company Number: None

PATIENT
  Age: 60 Year
  Sex: Female

DRUGS (1)
  1. HUMIRA [Suspect]
     Dosage: 40 mg q14days  Subq
     Route: 058
     Dates: start: 20101217

REACTIONS (2)
  - Injection site haemorrhage [None]
  - Injection site bruising [None]
